FAERS Safety Report 7187934-2 (Version None)
Quarter: 2010Q4

REPORT INFORMATION
  Report Type: 
  Country: None (occurrence: None)
  Receive Date: 20101222
  Receipt Date: 20100712
  Transmission Date: 20110411
  Serious: No
  Sender: FDA-Public Use
  Company Number: US-AMGEN-KDL423703

PATIENT

DRUGS (11)
  1. ENBREL [Suspect]
     Indication: PRODUCT USED FOR UNKNOWN INDICATION
     Dosage: 50 MG, QWK
     Route: 058
  2. ROPINIROLE [Concomitant]
     Dosage: 1 MG, UNK
  3. FUROSEMIDE [Concomitant]
     Dosage: 20 MG, UNK
  4. LEFLUNOMIDE [Concomitant]
     Dosage: 20 MG, UNK
  5. SIMVASTATIN [Concomitant]
     Dosage: 20 MG, UNK
  6. GABAPENTIN [Concomitant]
     Dosage: 600 MG, UNK
  7. METFORMIN [Concomitant]
     Dosage: 1000 MG, UNK
  8. METOPROLOL [Concomitant]
     Dosage: 25 MG, UNK
  9. OMEPRAZOLE [Concomitant]
     Dosage: 20 MG, UNK
  10. COMBIVENT [Concomitant]
  11. HYDROCODONE BITARTRATE [Concomitant]
     Dosage: UNK UNK, UNK

REACTIONS (5)
  - HEADACHE [None]
  - INJECTION SITE ERYTHEMA [None]
  - INJECTION SITE PAIN [None]
  - INJECTION SITE PRURITUS [None]
  - INJECTION SITE REACTION [None]
